FAERS Safety Report 9439518 (Version 1)
Quarter: 2013Q3

REPORT INFORMATION
  Report Type: Spontaneous
  Country: GB (occurrence: GB)
  Receive Date: 20130805
  Receipt Date: 20130805
  Transmission Date: 20140515
  Serious: Yes (Other)
  Sender: FDA-Public Use
  Company Number: GB-JNJFOC-20130716644

PATIENT
  Age: 29 Year
  Sex: Male

DRUGS (2)
  1. ROGAINE FOR MEN EXTRA STRENGTH [Suspect]
     Route: 061
  2. ROGAINE EXTRA STRENGTH FOR MEN [Suspect]
     Indication: PRODUCT USED FOR UNKNOWN INDICATION
     Route: 061
     Dates: end: 20130721

REACTIONS (2)
  - Rash pustular [Unknown]
  - Skin burning sensation [Unknown]
